FAERS Safety Report 17307166 (Version 4)
Quarter: 2020Q1

REPORT INFORMATION
  Report Type: Report from Study
  Country: CA (occurrence: CA)
  Receive Date: 20200123
  Receipt Date: 20200318
  Transmission Date: 20200409
  Serious: Yes (Other)
  Sender: FDA-Public Use
  Company Number: CA-NALPROPION PHARMACEUTICALS INC.-2020-009447

PATIENT

DRUGS (8)
  1. CONTRAVE [Suspect]
     Active Substance: BUPROPION HYDROCHLORIDE\NALTREXONE HYDROCHLORIDE
     Dosage: 8 MG/90 MG; 1 TABLET IN MORNING
     Route: 048
     Dates: start: 20191226, end: 20191226
  2. CONTRAVE [Suspect]
     Active Substance: BUPROPION HYDROCHLORIDE\NALTREXONE HYDROCHLORIDE
     Dosage: STRENGTH: 8 MG/90 MG; 2 TABLETS IN MORNING (STOP DATE: 07/FEB/2020 APPROXIMATELY)
     Route: 048
     Dates: start: 20200127, end: 202002
  3. CONTRAVE [Suspect]
     Active Substance: BUPROPION HYDROCHLORIDE\NALTREXONE HYDROCHLORIDE
     Dosage: STRENGTH: 8 MG/90 MG; 1 TABLET IN MORNING, SECOND ATTEMPT
     Route: 048
     Dates: start: 20200110, end: 20200116
  4. CONTRAVE [Suspect]
     Active Substance: BUPROPION HYDROCHLORIDE\NALTREXONE HYDROCHLORIDE
     Dosage: STRENGTH: 8 MG/90 MG; 2 TABLETS IN MORNING AND ONE IN THE EVENING
     Route: 048
     Dates: start: 20200124, end: 20200126
  5. BUSPIRONE [Concomitant]
     Active Substance: BUSPIRONE HYDROCHLORIDE
     Indication: ANXIETY
     Dosage: 5 MG, 2 IN 1 D
     Route: 048
     Dates: start: 20191125, end: 20191224
  6. ALESSE 28 [Concomitant]
     Active Substance: ETHINYL ESTRADIOL\LEVONORGESTREL
     Indication: CONTRACEPTION
     Dosage: 1 DOSAGE FORMS
     Route: 048
  7. CONTRAVE [Suspect]
     Active Substance: BUPROPION HYDROCHLORIDE\NALTREXONE HYDROCHLORIDE
     Dosage: STRENGTH: 8 MG/90 MG; 1 TABLET IN MORNING AND ONE IN THE EVENING
     Route: 048
     Dates: start: 20200117, end: 20200123
  8. CONTRAVE [Suspect]
     Active Substance: BUPROPION HYDROCHLORIDE\NALTREXONE HYDROCHLORIDE
     Indication: WEIGHT CONTROL
     Dosage: STRENGTH: 8 MG/90 MG; 1 TABLET IN MORNING
     Route: 048
     Dates: start: 20191219, end: 20191223

REACTIONS (7)
  - Gastroenteritis viral [Unknown]
  - Vomiting [Recovered/Resolved]
  - Intentional product use issue [Unknown]
  - Vaginal haemorrhage [Recovered/Resolved]
  - Hypophagia [Recovered/Resolved]
  - Insomnia [Recovering/Resolving]
  - Fatigue [Recovering/Resolving]

NARRATIVE: CASE EVENT DATE: 201912
